FAERS Safety Report 5063677-6 (Version None)
Quarter: 2006Q3

REPORT INFORMATION
  Report Type: 
  Country: None (occurrence: None)
  Receive Date: 20060724
  Receipt Date: 20060707
  Transmission Date: 20061208
  Serious: Yes (Other)
  Sender: FDA-Public Use
  Company Number: DSA_28418_2006

PATIENT
  Age: 44 Year
  Sex: Female

DRUGS (3)
  1. LORAX /00273201/ [Suspect]
     Indication: ANXIETY
     Dosage: 0.5 MG QD PO
     Route: 048
     Dates: start: 20060101
  2. LORAX /00273201/ [Suspect]
     Indication: ANXIETY
     Dosage: 2 MG QD PO
     Route: 048
     Dates: start: 20051201, end: 20060101
  3. LORAX /00273201/ [Suspect]
     Indication: ANXIETY
     Dosage: 1 MG QD PO
     Route: 048
     Dates: start: 19960101, end: 20051201

REACTIONS (10)
  - AGITATION [None]
  - DRUG WITHDRAWAL SYNDROME [None]
  - DYSPHORIA [None]
  - FEAR [None]
  - HYPOAESTHESIA [None]
  - INSOMNIA [None]
  - PANIC ATTACK [None]
  - TACHYCARDIA [None]
  - TINNITUS [None]
  - WEIGHT DECREASED [None]
